FAERS Safety Report 6865206-0 (Version None)
Quarter: 2010Q3

REPORT INFORMATION
  Report Type: 
  Country: None (occurrence: None)
  Receive Date: 20100721
  Receipt Date: 20080428
  Transmission Date: 20110219
  Serious: No
  Sender: FDA-Public Use
  Company Number: US-PFIZER INC-2008033629

PATIENT
  Sex: Female
  Weight: 63.636 kg

DRUGS (5)
  1. CHANTIX [Suspect]
     Indication: SMOKING CESSATION THERAPY
     Dates: start: 20080407
  2. ALTACE [Concomitant]
  3. AMLODIPINE [Concomitant]
  4. SIMVASTATIN [Concomitant]
  5. VITAMINS [Concomitant]

REACTIONS (6)
  - ABNORMAL DREAMS [None]
  - FLATULENCE [None]
  - INCORRECT DOSE ADMINISTERED [None]
  - NAUSEA [None]
  - POOR QUALITY SLEEP [None]
  - SOMNOLENCE [None]
